FAERS Safety Report 4353887-5 (Version None)
Quarter: 2004Q2

REPORT INFORMATION
  Report Type: 
  Country: None (occurrence: None)
  Receive Date: 20040506
  Receipt Date: 20040420
  Transmission Date: 20050107
  Serious: Yes (Death)
  Sender: FDA-Public Use
  Company Number: PHEH2004US04451

PATIENT
  Age: 51 Year
  Sex: Female

DRUGS (6)
  1. ZOMETA [Suspect]
     Indication: METASTASES TO BONE
     Dosage: 4 MG ONE TIME ONLY DOSE
     Route: 042
     Dates: start: 20040419
  2. HERCEPTIN [Concomitant]
     Dosage: 452 MG LOADING DOSE
     Dates: start: 20040419, end: 20040419
  3. NAVELBINE [Concomitant]
     Indication: BREAST CANCER
     Dosage: 50 MG IV PIGGYBACK
     Route: 042
     Dates: start: 20040419, end: 20040419
  4. BENADRYL [Concomitant]
     Indication: PROPHYLAXIS
     Dosage: 25 MG PIGGYBACK
     Route: 042
     Dates: start: 20040419, end: 20040419
  5. KYTRIL [Concomitant]
     Indication: PROPHYLAXIS
     Dosage: 1 MG PIGGYBACK
     Dates: start: 20040419, end: 20040419
  6. EPOGEN [Concomitant]
     Indication: ANAEMIA
     Dosage: 40,000 U WEEKLY
     Route: 058

REACTIONS (3)
  - DYSPNOEA [None]
  - PULMONARY EMBOLISM [None]
  - RESPIRATORY DISTRESS [None]
